FAERS Safety Report 9697474 (Version 2)
Quarter: 2013Q4

REPORT INFORMATION
  Report Type: Spontaneous
  Country: IE (occurrence: IE)
  Receive Date: 20131120
  Receipt Date: 20131202
  Transmission Date: 20140711
  Serious: Yes (Other)
  Sender: FDA-Public Use
  Company Number: PHHY2013IE132313

PATIENT
  Age: 72 Year
  Sex: Male

DRUGS (5)
  1. ZOMETA [Suspect]
     Indication: TEMPORAL ARTERITIS
     Dosage: UNK UKN, UNK
     Dates: start: 20131112
  2. LIPITOR [Concomitant]
     Dosage: UNK UKN, UNK
  3. ATENOMEL [Concomitant]
     Dosage: UNK UKN, UNK
  4. COZAAR [Concomitant]
     Dosage: UNK UKN, UNK
  5. GLUCOPHAGE [Concomitant]
     Dosage: UNK UKN, UNK

REACTIONS (7)
  - Optic neuritis [Recovering/Resolving]
  - Eye pain [Recovering/Resolving]
  - Pain [Recovering/Resolving]
  - Eye swelling [Unknown]
  - Ocular hyperaemia [Unknown]
  - Photophobia [Unknown]
  - Musculoskeletal pain [Unknown]
